FAERS Safety Report 17879838 (Version 1)
Quarter: 2020Q2

REPORT INFORMATION
  Report Type: Spontaneous
  Country: US (occurrence: US)
  Receive Date: 20200610
  Receipt Date: 20200610
  Transmission Date: 20200714
  Serious: No
  Sender: FDA-Public Use
  Company Number: US-PFIZER INC-2020225620

PATIENT
  Age: 69 Year
  Sex: Male

DRUGS (2)
  1. IBRANCE [Suspect]
     Active Substance: PALBOCICLIB
     Indication: PROSTATE CANCER
  2. IBRANCE [Suspect]
     Active Substance: PALBOCICLIB
     Indication: NEPHROGENIC ANAEMIA
     Dosage: 100 MG

REACTIONS (3)
  - Off label use [Unknown]
  - Malaise [Unknown]
  - Product use in unapproved indication [Unknown]
